FAERS Safety Report 14784995 (Version 1)
Quarter: 2018Q2

REPORT INFORMATION
  Report Type: Spontaneous
  Country: CH (occurrence: CH)
  Receive Date: 20180420
  Receipt Date: 20180420
  Transmission Date: 20180711
  Serious: Yes (Other)
  Sender: FDA-Public Use
  Company Number: CH-PFIZER INC-2018158223

PATIENT
  Sex: Male
  Weight: 2.9 kg

DRUGS (9)
  1. PROPOFOL. [Suspect]
     Active Substance: PROPOFOL
     Dosage: 2 G, SINGLE
     Route: 064
     Dates: start: 20170510, end: 20170510
  2. CELEBREX [Suspect]
     Active Substance: CELECOXIB
     Indication: ARTHRITIS
     Dosage: 400 MG, 1X/DAY
     Route: 064
     Dates: start: 20170510, end: 20170513
  3. CEFAZOLINE [Suspect]
     Active Substance: CEFAZOLIN SODIUM
     Dosage: 2 G, SINGLE
     Route: 064
     Dates: start: 20170510, end: 20170510
  4. PROFENID [Suspect]
     Active Substance: KETOPROFEN
     Dosage: 100 MG, SINGLE
     Route: 064
     Dates: start: 20170510, end: 20170510
  5. ENOXAPARINE SODIQUE [Suspect]
     Active Substance: ENOXAPARIN SODIUM
     Dosage: 4000 DF, UNK (UNSPECIFIED DURATION)
     Route: 064
     Dates: start: 20170510, end: 2017
  6. FENTANYL. [Suspect]
     Active Substance: FENTANYL
     Dosage: 250 MG, SINGLE
     Route: 064
     Dates: start: 20170510, end: 20170510
  7. PARACETAMOL [Suspect]
     Active Substance: ACETAMINOPHEN
     Dosage: 3 G, SINGLE
     Route: 064
     Dates: start: 20170510, end: 20170510
  8. ACUPAN [Suspect]
     Active Substance: NEFOPAM HYDROCHLORIDE
     Dosage: 80 MG, SINGLE
     Route: 064
     Dates: start: 20170510, end: 20170510
  9. ATRACURIUM [Suspect]
     Active Substance: ATRACURIUM
     Dosage: 60 MG, SINGLE
     Route: 064
     Dates: start: 20170510, end: 20170510

REACTIONS (3)
  - Maternal exposure during pregnancy [Recovered/Resolved]
  - Microcephaly [Unknown]
  - Jaundice neonatal [Recovered/Resolved]

NARRATIVE: CASE EVENT DATE: 20170510
